FAERS Safety Report 5649450-6 (Version None)
Quarter: 2008Q1

REPORT INFORMATION
  Report Type: 
  Country: None (occurrence: None)
  Receive Date: 20080304
  Receipt Date: 20080218
  Transmission Date: 20080703
  Serious: Yes (Other)
  Sender: FDA-Public Use
  Company Number: US-GENENTECH-251350

PATIENT
  Age: 54 Year
  Sex: Male

DRUGS (4)
  1. AVASTIN [Suspect]
     Indication: PANCREATIC CARCINOMA METASTATIC
     Dosage: 7.5 MG/KG, Q3W
     Route: 065
     Dates: start: 20060215
  2. OXALIPLATIN [Suspect]
     Indication: PANCREATIC CARCINOMA METASTATIC
     Dosage: 130 MG/M2, Q3W
     Route: 065
     Dates: start: 20060215
  3. S1 (FLUOROPYRIMIDINE) [Suspect]
     Indication: PANCREATIC CARCINOMA METASTATIC
     Dosage: 30 MG, UNK
     Route: 048
     Dates: start: 20060215
  4. OCTREOTIDE ACETATE [Concomitant]
     Indication: DRUG USE FOR UNKNOWN INDICATION

REACTIONS (1)
  - PNEUMATOSIS INTESTINALIS [None]
